FAERS Safety Report 14668346 (Version 1)
Quarter: 2018Q1

REPORT INFORMATION
  Report Type: Spontaneous
  Country: US (occurrence: US)
  Receive Date: 20180321
  Receipt Date: 20180321
  Transmission Date: 20180509
  Serious: No
  Sender: FDA-Public Use
  Company Number: None

PATIENT
  Age: 38 Year
  Sex: Female

DRUGS (9)
  1. VITAMIN E [Concomitant]
     Active Substance: .ALPHA.-TOCOPHEROL
  2. VITAMIN C [Concomitant]
     Active Substance: ASCORBIC ACID
  3. FISH OIL [Concomitant]
     Active Substance: FISH OIL
  4. IRON [Concomitant]
     Active Substance: IRON
  5. ESTROGEL [Suspect]
     Active Substance: ESTRADIOL
  6. ESTRADIOL. [Suspect]
     Active Substance: ESTRADIOL
  7. LORAZEPAM. [Concomitant]
     Active Substance: LORAZEPAM
  8. OMEPRAZOLE. [Concomitant]
     Active Substance: OMEPRAZOLE
  9. VITAMIN D [Concomitant]
     Active Substance: CHOLECALCIFEROL

REACTIONS (10)
  - Drug effect decreased [None]
  - Fatigue [None]
  - Fluid retention [None]
  - Hypoaesthesia [None]
  - Menopausal symptoms [None]
  - Swelling face [None]
  - Alopecia [None]
  - Dry eye [None]
  - Weight increased [None]
  - Chest discomfort [None]
